FAERS Safety Report 4822590-7 (Version None)
Quarter: 2005Q4

REPORT INFORMATION
  Report Type: 
  Country: None (occurrence: None)
  Receive Date: 20051104
  Receipt Date: 20051021
  Transmission Date: 20060501
  Serious: Yes (Death)
  Sender: FDA-Public Use
  Company Number: 2005P1000276

PATIENT
  Age: 67 Year
  Sex: Male

DRUGS (10)
  1. RETEPLASE            (RETEPLASE) [Suspect]
     Indication: ACUTE MYOCARDIAL INFARCTION
     Dosage: IV
     Route: 042
     Dates: start: 20050717, end: 20050717
  2. ABCIXIMAB              (ABCIXIMAB) [Suspect]
     Indication: ACUTE MYOCARDIAL INFARCTION
     Dosage: IV
     Route: 042
     Dates: start: 20050717, end: 20050717
  3. CLOPIDOGREL BISULFATE [Concomitant]
  4. ATORVASTATIN CALCIUM [Concomitant]
  5. ENALAPRIL [Concomitant]
  6. OMEPRAZOLE [Concomitant]
  7. SERETIDE MITE [Concomitant]
  8. INYESPRIN [Concomitant]
  9. INSULIN [Concomitant]
  10. SALBUTAMOL [Concomitant]

REACTIONS (12)
  - ACUTE MYOCARDIAL INFARCTION [None]
  - CARDIAC DISORDER [None]
  - CARDIO-RESPIRATORY ARREST [None]
  - CORONARY ARTERY THROMBOSIS [None]
  - DILATATION ATRIAL [None]
  - DILATATION VENTRICULAR [None]
  - HAEMORRHAGE [None]
  - INTRACARDIAC THROMBUS [None]
  - PROCEDURAL COMPLICATION [None]
  - PRODUCTIVE COUGH [None]
  - RESPIRATORY TRACT INFECTION [None]
  - VENTRICULAR FIBRILLATION [None]
